FAERS Safety Report 12906601 (Version 1)
Quarter: 2016Q4

REPORT INFORMATION
  Report Type: Spontaneous
  Country: US (occurrence: US)
  Receive Date: 20161103
  Receipt Date: 20161103
  Transmission Date: 20170207
  Serious: Yes (Other)
  Sender: FDA-Public Use
  Company Number: US-GLAXOSMITHKLINE-US2016GSK161707

PATIENT
  Sex: Female

DRUGS (21)
  1. WELLBUTRIN [Suspect]
     Active Substance: BUPROPION HYDROCHLORIDE
     Indication: PRODUCT USED FOR UNKNOWN INDICATION
     Dosage: UNK
     Dates: start: 2016
  2. BUPROPION XL [Concomitant]
     Active Substance: BUPROPION
  3. XYREM [Suspect]
     Active Substance: SODIUM OXYBATE
     Indication: NARCOLEPSY
     Dosage: 2.25 G, BID
     Route: 048
     Dates: start: 201311, end: 2013
  4. CALCIUM AND VITAMIN D3 [Concomitant]
     Active Substance: CALCIUM\CHOLECALCIFEROL
  5. VITAMIN D3 [Concomitant]
     Active Substance: CHOLECALCIFEROL
  6. BENAZEPRIL HYDROCHLORIDE. [Concomitant]
     Active Substance: BENAZEPRIL HYDROCHLORIDE
  7. METHYLDOPA. [Concomitant]
     Active Substance: METHYLDOPA
     Dosage: UNK
     Dates: start: 201602
  8. XYREM [Suspect]
     Active Substance: SODIUM OXYBATE
     Dosage: 3.25 G, UNK
     Route: 048
     Dates: start: 201510
  9. BUPROPION SR PROLONGED-RELEASE TABLET [Concomitant]
     Active Substance: BUPROPION
  10. DESONIDE. [Concomitant]
     Active Substance: DESONIDE
  11. FISH OIL [Concomitant]
     Active Substance: FISH OIL
  12. LAMOTRIGINE EXTENDED RELEASE [Concomitant]
     Active Substance: LAMOTRIGINE
  13. METOPROLOL TARTRATE. [Concomitant]
     Active Substance: METOPROLOL TARTRATE
  14. KETOCONAZOLE. [Concomitant]
     Active Substance: KETOCONAZOLE
     Dosage: UNK
     Dates: start: 201608
  15. LEVOTHYROXINE SODIUM. [Concomitant]
     Active Substance: LEVOTHYROXINE SODIUM
  16. MONTELUKAST SODIUM. [Concomitant]
     Active Substance: MONTELUKAST SODIUM
  17. FLUOCINOLONE ACETONIDE. [Concomitant]
     Active Substance: FLUOCINOLONE ACETONIDE
  18. ATENOLOL. [Concomitant]
     Active Substance: ATENOLOL
  19. ARMOUR THYROID [Concomitant]
     Active Substance: THYROID, PORCINE
  20. FEXOFENADINE HYDROCHLORIDE. [Concomitant]
     Active Substance: FEXOFENADINE HYDROCHLORIDE
  21. XYREM [Suspect]
     Active Substance: SODIUM OXYBATE
     Dosage: 4.5 G, UNK
     Route: 048
     Dates: start: 201510

REACTIONS (2)
  - Skin disorder [Unknown]
  - Depression [Unknown]
